FAERS Safety Report 10246732 (Version 1)
Quarter: 2014Q2

REPORT INFORMATION
  Report Type: Spontaneous
  Country: DE (occurrence: DE)
  Receive Date: 20140619
  Receipt Date: 20140619
  Transmission Date: 20141212
  Serious: Yes (Death)
  Sender: FDA-Public Use
  Company Number: DE-MYLANLABS-2014S1014048

PATIENT
  Age: 86 Year
  Sex: Male

DRUGS (9)
  1. VALPROIC ACID [Suspect]
     Indication: PARTIAL SEIZURES
     Route: 065
  2. CLONAZEPAM [Suspect]
     Route: 065
  3. LEVODOPA [Suspect]
     Route: 065
  4. OMEPRAZOLE [Suspect]
     Route: 065
  5. CLOPIDOGREL [Suspect]
     Route: 065
  6. FUROSEMIDE [Suspect]
     Route: 065
  7. CIPROFLOXACIN [Suspect]
     Route: 065
  8. HEPARIN [Suspect]
     Route: 065
  9. DICLOFENAC [Suspect]
     Route: 065

REACTIONS (1)
  - Hepatic failure [Fatal]
